FAERS Safety Report 6139348-1 (Version None)
Quarter: 2009Q2

REPORT INFORMATION
  Report Type: 
  Country: None (occurrence: None)
  Receive Date: 20090401
  Receipt Date: 20090324
  Transmission Date: 20091009
  Serious: Yes (Other)
  Sender: FDA-Public Use
  Company Number: GB-ROCHE-623775

PATIENT
  Sex: Male
  Weight: 100.7 kg

DRUGS (13)
  1. ORLISTAT [Suspect]
     Indication: OBESITY
     Route: 048
     Dates: start: 20081207
  2. SIMVASTATIN [Concomitant]
     Route: 048
  3. ASPIRIN [Concomitant]
     Dosage: INDICATION REPORTED AS ^BLOOD^.
     Route: 048
  4. QUININE [Concomitant]
     Dosage: DRUG REPORTED AS QUINNE.
     Route: 048
  5. INSULIN GLARGINE [Concomitant]
     Dosage: DRUG: GLARGINE, ROUTE: INJECTION, DOSING REGIMEN: 54 UNITS ONCE DAILY.
     Route: 050
  6. LOSARTAN POTASSIUM [Concomitant]
     Route: 048
  7. LANSOPRAZOLE [Concomitant]
     Route: 048
  8. METFORMIN [Concomitant]
  9. PARACETAMOL [Concomitant]
     Indication: PAIN
     Route: 048
  10. CODEINE PHOSPHATE [Concomitant]
     Indication: PAIN
     Route: 048
  11. METOCLOPRAMIDE [Concomitant]
     Route: 048
  12. DICLOFENAC [Concomitant]
     Indication: PAIN
     Route: 048
  13. ZYVOX [Concomitant]
     Indication: ANTIBIOTIC THERAPY

REACTIONS (1)
  - OSTEOMYELITIS [None]
